FAERS Safety Report 12769721 (Version 3)
Quarter: 2016Q4

REPORT INFORMATION
  Report Type: Report from Study
  Country: US (occurrence: US)
  Receive Date: 20160922
  Receipt Date: 20161031
  Transmission Date: 20170207
  Serious: Yes (Other)
  Sender: FDA-Public Use
  Company Number: US-AMGEN-USASL2016125790

PATIENT
  Age: 67 Year
  Sex: Female
  Weight: 68.5 kg

DRUGS (4)
  1. SYNTHROID [Concomitant]
     Active Substance: LEVOTHYROXINE SODIUM
     Dosage: 100 MUG, QD
     Route: 048
  2. SINGULAIR [Concomitant]
     Active Substance: MONTELUKAST SODIUM
     Dosage: 10 MG, QD (NIGHTLY)
     Route: 048
  3. REPATHA [Suspect]
     Active Substance: EVOLOCUMAB
     Indication: HYPERLIPIDAEMIA
     Dosage: 140 MG, Q2WK
     Route: 058
     Dates: start: 20160809, end: 20160906
  4. PRALUENT [Concomitant]
     Active Substance: ALIROCUMAB
     Dosage: 75 UNK, Q2WK
     Route: 058

REACTIONS (8)
  - Influenza like illness [Recovering/Resolving]
  - Neck pain [Recovering/Resolving]
  - Rash pruritic [Recovering/Resolving]
  - Pain [Recovering/Resolving]
  - Rash erythematous [Recovering/Resolving]
  - Swelling face [Recovering/Resolving]
  - Pain in jaw [Recovering/Resolving]
  - Rash generalised [Recovering/Resolving]
